FAERS Safety Report 15181097 (Version 1)
Quarter: 2018Q3

REPORT INFORMATION
  Report Type: Spontaneous
  Country: US (occurrence: US)
  Receive Date: 20180624
  Receipt Date: 20180624
  Transmission Date: 20181010
  Serious: Yes (Disabling)
  Sender: FDA-Public Use
  Company Number: None

PATIENT
  Age: 28 Year
  Sex: Female
  Weight: 56.25 kg

DRUGS (3)
  1. MALARONE [Suspect]
     Active Substance: ATOVAQUONE\PROGUANIL HYDROCHLORIDE
     Indication: MALARIA PROPHYLAXIS
     Route: 048
     Dates: start: 20180228, end: 20180309
  2. MAGNESIUM SUPPLEMENT [Concomitant]
  3. ALESS BIRTH CONTROL [Concomitant]

REACTIONS (6)
  - Dizziness [None]
  - Condition aggravated [None]
  - Muscle twitching [None]
  - Therapy cessation [None]
  - Thirst [None]
  - Depression [None]

NARRATIVE: CASE EVENT DATE: 20180228
